FAERS Safety Report 9049694 (Version 1)
Quarter: 2013Q1

REPORT INFORMATION
  Report Type: Other
  Country: GB (occurrence: GB)
  Receive Date: 20130205
  Receipt Date: 20130205
  Transmission Date: 20140127
  Serious: Yes (Other)
  Sender: FDA-Public Use
  Company Number: GB-WATSON-2013-01663

PATIENT
  Sex: Female

DRUGS (4)
  1. ATENOLOL (UNKNOWN) [Suspect]
     Indication: HIP ARTHROPLASTY
     Dosage: 25 MG, DAILY
     Route: 065
     Dates: end: 200811
  2. INDERAL LA [Concomitant]
     Indication: PRODUCT USED FOR UNKNOWN INDICATION
     Dosage: 160MG
     Route: 065
  3. INDERAL LA [Concomitant]
     Dosage: 80MG
     Route: 065
  4. IBUPROFEN [Concomitant]
     Indication: PRODUCT USED FOR UNKNOWN INDICATION
     Dosage: UNKNOWN
     Route: 065

REACTIONS (7)
  - Decreased activity [Recovering/Resolving]
  - Headache [Not Recovered/Not Resolved]
  - Malaise [Recovered/Resolved]
  - Head discomfort [Not Recovered/Not Resolved]
  - Alopecia [Recovering/Resolving]
  - Insomnia [Recovering/Resolving]
  - Feeling abnormal [Recovering/Resolving]
